FAERS Safety Report 9974146 (Version 1)
Quarter: 2014Q1

REPORT INFORMATION
  Report Type: Report from Study
  Country: US (occurrence: US)
  Receive Date: 20140306
  Receipt Date: 20140306
  Transmission Date: 20141002
  Serious: No
  Sender: FDA-Public Use
  Company Number: US-ABBVIE-13P-163-1158778-00

PATIENT
  Age: 30 Year
  Sex: Female

DRUGS (3)
  1. HUMIRA [Suspect]
     Indication: COLITIS ULCERATIVE
     Dates: start: 20130814
  2. ANTI-COLON SPASM [Suspect]
     Indication: PRODUCT USED FOR UNKNOWN INDICATION
  3. IRON [Concomitant]
     Indication: ANAEMIA

REACTIONS (4)
  - Chills [Not Recovered/Not Resolved]
  - Somnolence [Unknown]
  - Colitis ulcerative [Not Recovered/Not Resolved]
  - Tremor [Not Recovered/Not Resolved]
